FAERS Safety Report 8895818 (Version 2)
Quarter: 2012Q4

REPORT INFORMATION
  Report Type: 
  Country: US (occurrence: US)
  Receive Date: 20121108
  Receipt Date: 20121112
  Transmission Date: 20130627
  Serious: Yes (Hospitalization)
  Sender: FDA-Public Use
  Company Number: US-ELI_LILLY_AND_COMPANY-US201210009537

PATIENT
  Age: 88 Year
  Sex: Male

DRUGS (1)
  1. FORTEO [Suspect]
     Indication: OSTEOPOROSIS
     Dosage: UNK
     Dates: start: 201206

REACTIONS (3)
  - Cerebrovascular accident [Unknown]
  - Disorientation [Unknown]
  - Inappropriate schedule of drug administration [Unknown]
